FAERS Safety Report 5923071-X (Version None)
Quarter: 2008Q4

REPORT INFORMATION
  Report Type: 
  Country: None (occurrence: None)
  Receive Date: 20081018
  Receipt Date: 20081007
  Transmission Date: 20090506
  Serious: Yes (Hospitalization)
  Sender: FDA-Public Use
  Company Number: JP-PFIZER INC-2008084785

PATIENT

DRUGS (3)
  1. ALDACTONE [Suspect]
  2. CARDENALIN [Suspect]
  3. DRUG, UNSPECIFIED [Concomitant]

REACTIONS (1)
  - DIABETES INSIPIDUS [None]
